FAERS Safety Report 5494324-7 (Version None)
Quarter: 2007Q4

REPORT INFORMATION
  Report Type: 
  Country: None (occurrence: None)
  Receive Date: 20071022
  Receipt Date: 20071011
  Transmission Date: 20080405
  Serious: Yes (Life-Threatening, Hospitalization)
  Sender: FDA-Public Use
  Company Number: 2007-03415

PATIENT
  Age: 64 Year
  Sex: Female

DRUGS (3)
  1. VELCADE [Suspect]
     Indication: MULTIPLE MYELOMA
     Dosage: 2.10 MG, INTRAVENOUS
     Route: 042
     Dates: start: 20061127, end: 20061204
  2. DOXORUBICIN HCL [Suspect]
     Indication: MULTIPLE MYELOMA
     Dosage: INTRAVENOUS
     Route: 042
     Dates: start: 20061127, end: 20061130
  3. DEXAMETHASONE 0.5MG TAB [Concomitant]

REACTIONS (10)
  - ANAEMIA [None]
  - BICYTOPENIA [None]
  - FEEDING DISORDER [None]
  - HYPOKALAEMIA [None]
  - INFLAMMATION [None]
  - LEUKOPENIA [None]
  - NAUSEA [None]
  - STOMATITIS [None]
  - THROMBOCYTOPENIA [None]
  - VOMITING [None]
